FAERS Safety Report 7155805-3 (Version None)
Quarter: 2010Q4

REPORT INFORMATION
  Report Type: 
  Country: None (occurrence: None)
  Receive Date: 20101123
  Receipt Date: 20100819
  Transmission Date: 20110411
  Serious: No
  Sender: FDA-Public Use
  Company Number: 009246

PATIENT
  Sex: Female
  Weight: 117.9 kg

DRUGS (3)
  1. CIMZIA [Suspect]
     Indication: CROHN'S DISEASE
     Dosage: 400 MG 1X/MONTH SUBCUTANEOUS, 400 MG 1X/21 DAYS SUBCUTANEOUS
     Route: 058
     Dates: start: 20090801
  2. CIMZIA [Suspect]
     Indication: CROHN'S DISEASE
     Dosage: 400 MG 1X/MONTH SUBCUTANEOUS, 400 MG 1X/21 DAYS SUBCUTANEOUS
     Route: 058
     Dates: start: 20100713
  3. CIMZIA [Suspect]

REACTIONS (4)
  - ABDOMINAL DISCOMFORT [None]
  - ABDOMINAL PAIN [None]
  - ASTHMA [None]
  - FREQUENT BOWEL MOVEMENTS [None]
